FAERS Safety Report 6666806-3 (Version None)
Quarter: 2010Q2

REPORT INFORMATION
  Report Type: 
  Country: None (occurrence: None)
  Receive Date: 20100401
  Receipt Date: 20100401
  Transmission Date: 20101027
  Serious: No
  Sender: FDA-Public Use
  Company Number: None

PATIENT
  Sex: Female
  Weight: 91.6266 kg

DRUGS (2)
  1. IMDUR [Suspect]
     Indication: CORONARY ARTERY DISEASE
     Dosage: 30 MG ONCE DAILY ORAL
     Route: 048
  2. IMDUR [Suspect]
     Indication: HYPERTENSION
     Dosage: 30 MG ONCE DAILY ORAL
     Route: 048

REACTIONS (4)
  - BURNING SENSATION [None]
  - NAUSEA [None]
  - PALPITATIONS [None]
  - PRURITUS [None]
